FAERS Safety Report 24201173 (Version 3)
Quarter: 2024Q4

REPORT INFORMATION
  Report Type: Spontaneous
  Country: US (occurrence: US)
  Receive Date: 20240812
  Receipt Date: 20241206
  Transmission Date: 20250115
  Serious: Yes (Other)
  Sender: PFIZER
  Company Number: US-PFIZER INC-PV202400104382

PATIENT
  Age: 83 Year
  Sex: Female

DRUGS (2)
  1. IBRANCE [Suspect]
     Active Substance: PALBOCICLIB
     Dosage: 1 TABLET DAILY, (1 WEEK ON, 1 WEEK OFF)/7 DAYS ON 7 DAYS OFF
  2. ASPIRIN [Concomitant]
     Active Substance: ASPIRIN

REACTIONS (14)
  - Neutropenia [Unknown]
  - Off label use [Unknown]
  - Product use issue [Unknown]
  - Malaise [Unknown]
  - Memory impairment [Unknown]
  - Fatigue [Unknown]
  - Alopecia [Unknown]
  - Rash [Unknown]
  - Asthenia [Unknown]
  - Cough [Unknown]
  - Visual impairment [Unknown]
  - Dizziness [Unknown]
  - Fall [Unknown]
  - Haemorrhagic diathesis [Unknown]
